FAERS Safety Report 10098506 (Version 1)
Quarter: 2014Q2

REPORT INFORMATION
  Report Type: Spontaneous
  Country: US (occurrence: None)
  Receive Date: 20140422
  Receipt Date: 20140422
  Transmission Date: 20141212
  Serious: Yes (Other)
  Sender: FDA-Public Use
  Company Number: None

PATIENT
  Age: 60 Year
  Sex: Female

DRUGS (3)
  1. SPINAL MARCAINE [Suspect]
     Indication: SPINAL ANAESTHESIA
     Route: 037
  2. FENTANYL [Concomitant]
  3. KETAMINE [Concomitant]

REACTIONS (2)
  - Arthralgia [None]
  - Inadequate analgesia [None]
